FAERS Safety Report 25372540 (Version 1)
Quarter: 2025Q2

REPORT INFORMATION
  Report Type: Spontaneous
  Country: GR (occurrence: GR)
  Receive Date: 20250529
  Receipt Date: 20250529
  Transmission Date: 20250717
  Serious: Yes (Other)
  Sender: CELLTRION
  Company Number: GR-CELLTRION INC.-2025GR016476

PATIENT

DRUGS (1)
  1. INFLIXIMAB [Suspect]
     Active Substance: INFLIXIMAB
     Indication: Colitis ulcerative
     Dosage: 120 MG, EVERY 2 WEEKS
     Route: 058
     Dates: start: 2024

REACTIONS (3)
  - Rectal haemorrhage [Recovering/Resolving]
  - Frequent bowel movements [Recovering/Resolving]
  - Genital infection female [Unknown]

NARRATIVE: CASE EVENT DATE: 20250501
